FAERS Safety Report 13937917 (Version 3)
Quarter: 2018Q2

REPORT INFORMATION
  Report Type: Spontaneous
  Country: US (occurrence: US)
  Receive Date: 20170905
  Receipt Date: 20180426
  Transmission Date: 20180711
  Serious: Yes (Hospitalization, Other)
  Sender: FDA-Public Use
  Company Number: US-DSJP-DSU-2017-134571

PATIENT

DRUGS (2)
  1. BENICAR HCT [Suspect]
     Active Substance: HYDROCHLOROTHIAZIDE\OLMESARTAN MEDOXOMIL
     Indication: HYPERTENSION
     Dosage: 20/12.5MG, QD
     Route: 048
     Dates: start: 20070803
  2. BENICAR [Suspect]
     Active Substance: OLMESARTAN MEDOXOMIL
     Indication: HYPERTENSION
     Dosage: 20 MG, UNK

REACTIONS (12)
  - Clostridium colitis [Unknown]
  - Diverticulitis [Unknown]
  - Gastrooesophageal reflux disease [Unknown]
  - Haemorrhoids [Unknown]
  - Gastrointestinal disorder [Unknown]
  - Hiatus hernia [Unknown]
  - Weight decreased [Recovered/Resolved]
  - Anaemia [Unknown]
  - Gastric ulcer [Unknown]
  - Gastritis [Unknown]
  - Rectal polyp [Unknown]
  - Oesophagitis [Unknown]

NARRATIVE: CASE EVENT DATE: 20090126
